FAERS Safety Report 10541638 (Version 1)
Quarter: 2014Q4

REPORT INFORMATION
  Report Type: Spontaneous
  Country: US (occurrence: US)
  Receive Date: 20141024
  Receipt Date: 20141024
  Transmission Date: 20150529
  Serious: No
  Sender: FDA-Public Use
  Company Number: US-ALLERGAN-1317925US

PATIENT
  Sex: Male

DRUGS (2)
  1. ALPHAGAN P [Suspect]
     Active Substance: BRIMONIDINE TARTRATE
     Indication: GLAUCOMA
     Dosage: 2 GTT, BID
     Route: 047
     Dates: start: 20131107, end: 20131109
  2. BLOOD PRESSURE PILL [Concomitant]
     Indication: BLOOD PRESSURE

REACTIONS (3)
  - Hypersensitivity [Recovering/Resolving]
  - Nasal discomfort [Recovering/Resolving]
  - Inappropriate schedule of drug administration [Unknown]
